FAERS Safety Report 9506936 (Version 3)
Quarter: 2013Q4

REPORT INFORMATION
  Report Type: Spontaneous
  Country: US (occurrence: US)
  Receive Date: 20130909
  Receipt Date: 20131104
  Transmission Date: 20140711
  Serious: Yes (Hospitalization)
  Sender: FDA-Public Use
  Company Number: US-009507513-1309USA000333

PATIENT
  Age: 81 Year
  Sex: Female
  Weight: 63.49 kg

DRUGS (11)
  1. SINEMET [Suspect]
     Indication: PARKINSON^S DISEASE
     Dosage: 1 DF, TID
     Route: 048
     Dates: start: 20120112, end: 20121010
  2. SINEMET [Suspect]
     Dosage: 2 DF, TID
     Route: 048
     Dates: start: 20121011, end: 20130116
  3. SINEMET [Suspect]
     Dosage: 8 DF, DAILY
     Route: 048
     Dates: start: 20130117, end: 20130318
  4. SINEMET [Suspect]
     Dosage: UNK
     Route: 048
     Dates: start: 20130319, end: 2013
  5. SINEMET [Suspect]
     Dosage: 2.5 DF, DAILY
     Route: 048
  6. SINEMET [Suspect]
     Dosage: 4 DF, DAILY
     Route: 048
     Dates: start: 20130416
  7. SINEMET [Suspect]
     Dosage: 1.5 MG DAILY
     Route: 048
     Dates: start: 20130924
  8. SINEMET [Suspect]
     Dosage: DOSE DECREASE , DOSE UNSPECIFIED
     Route: 048
     Dates: start: 20130528
  9. COZAAR [Concomitant]
  10. NORVASC [Concomitant]
  11. LEVOTHYROXINE SODIUM [Concomitant]

REACTIONS (25)
  - Abasia [Not Recovered/Not Resolved]
  - Musculoskeletal stiffness [Unknown]
  - Drug withdrawal syndrome [Not Recovered/Not Resolved]
  - Adverse event [Unknown]
  - Hallucination [Unknown]
  - Dyskinesia [Unknown]
  - Speech disorder [Not Recovered/Not Resolved]
  - Speech disorder [Unknown]
  - Abasia [Unknown]
  - Arthralgia [Unknown]
  - Pain [Unknown]
  - Abasia [Unknown]
  - Spinal compression fracture [Unknown]
  - Back pain [Unknown]
  - Blood pressure increased [Unknown]
  - Hypertension [Unknown]
  - Mood altered [Unknown]
  - Fall [Unknown]
  - Insomnia [Not Recovered/Not Resolved]
  - Agitation [Unknown]
  - Agitation [Unknown]
  - Hallucination [Unknown]
  - Hallucination [Unknown]
  - Wrong technique in drug usage process [Unknown]
  - Underdose [Unknown]
